FAERS Safety Report 4566631-3 (Version None)
Quarter: 2005Q1

REPORT INFORMATION
  Report Type: 
  Country: None (occurrence: None)
  Receive Date: 20050126
  Receipt Date: 20050110
  Transmission Date: 20050727
  Serious: No
  Sender: FDA-Public Use
  Company Number: USA041286731

PATIENT
  Age: 53 Year
  Sex: Male
  Weight: 95 kg

DRUGS (2)
  1. STRATTERA [Suspect]
     Dosage: 40 MG
     Dates: start: 20041001
  2. CIALIS [Suspect]
     Dosage: 20 MG

REACTIONS (6)
  - BACK PAIN [None]
  - BLOOD ALBUMIN INCREASED [None]
  - CHROMATURIA [None]
  - DIZZINESS [None]
  - PROTEIN TOTAL INCREASED [None]
  - PRURITUS [None]
